FAERS Safety Report 24926574 (Version 1)
Quarter: 2025Q1

REPORT INFORMATION
  Report Type: Spontaneous
  Country: GB (occurrence: GB)
  Receive Date: 20250205
  Receipt Date: 20250205
  Transmission Date: 20250409
  Serious: Yes (Other)
  Sender: HETERO
  Company Number: GB-MHRA-EMIS-10165-af19a74d-1fbd-41ce-ade2-d338a66b8d85

PATIENT
  Age: 68 Year
  Sex: Male
  Weight: 107 kg

DRUGS (3)
  1. LOSARTAN [Suspect]
     Active Substance: LOSARTAN
     Indication: Left ventricular failure
     Route: 065
     Dates: start: 20240205, end: 20250114
  2. TRAMADOL [Concomitant]
     Active Substance: TRAMADOL
     Indication: Pain
     Route: 065
     Dates: start: 20241105, end: 20241218
  3. AMOXICILLIN [Concomitant]
     Active Substance: AMOXICILLIN
     Indication: Product used for unknown indication
     Route: 065
     Dates: start: 20241209, end: 20250107

REACTIONS (3)
  - Aggression [Recovered/Resolved]
  - Anxiety [Recovered/Resolved]
  - Feeling abnormal [Recovered/Resolved]
